FAERS Safety Report 12235244 (Version 1)
Quarter: 2016Q2

REPORT INFORMATION
  Report Type: Other
  Country: US (occurrence: US)
  Receive Date: 20160404
  Receipt Date: 20160404
  Transmission Date: 20160815
  Serious: No
  Sender: FDA-Public Use
  Company Number: US-TARO-2015TAR00391

PATIENT
  Sex: Male
  Weight: 95.24 kg

DRUGS (7)
  1. SAW PALMETTO [Concomitant]
     Active Substance: SAW PALMETTO
  2. VITAMIN D [Concomitant]
     Active Substance: CHOLECALCIFEROL
  3. FOLIC ACID. [Concomitant]
     Active Substance: FOLIC ACID
  4. MULTIVITAMIN (UNSPECIFIED) [Concomitant]
     Active Substance: VITAMINS
  5. FLUOROURACIL TOPICAL CREAM USP 5% [Suspect]
     Active Substance: FLUOROURACIL
     Dosage: UNK
     Route: 061
     Dates: start: 201504
  6. GLUCOSAMINE CHONDROITIN [Concomitant]
     Active Substance: CHONDROITIN SULFATE (BOVINE)\GLUCOSAMINE HYDROCHLORIDE
  7. FLUOROURACIL TOPICAL CREAM USP 5% [Suspect]
     Active Substance: FLUOROURACIL
     Indication: PRECANCEROUS SKIN LESION
     Dosage: UNK, 2X/DAY
     Route: 061
     Dates: start: 201404

REACTIONS (2)
  - Drug ineffective [Recovered/Resolved]
  - Product quality control issue [Not Recovered/Not Resolved]

NARRATIVE: CASE EVENT DATE: 2015
